FAERS Safety Report 7694635-0 (Version None)
Quarter: 2011Q3

REPORT INFORMATION
  Report Type: 
  Country: None (occurrence: None)
  Receive Date: 20110816
  Receipt Date: 20110808
  Transmission Date: 20111222
  Serious: Yes (Other)
  Sender: FDA-Public Use
  Company Number: CIP11001932

PATIENT
  Sex: Female

DRUGS (4)
  1. FOSAMAX PLUS D [Suspect]
     Dosage: ORAL
     Route: 048
  2. ACTONEL [Suspect]
     Dosage: ORAL
     Route: 048
  3. FOSAMAX [Suspect]
     Dosage: ORAL
     Route: 048
  4. ALENDRONATE SODIUM [Suspect]
     Dosage: ORAL
     Route: 048

REACTIONS (7)
  - SKELETAL INJURY [None]
  - PAIN [None]
  - LOW TURNOVER OSTEOPATHY [None]
  - STRESS FRACTURE [None]
  - TOXICITY TO VARIOUS AGENTS [None]
  - FEMUR FRACTURE [None]
  - INCORRECT DRUG ADMINISTRATION DURATION [None]
